FAERS Safety Report 22524522 (Version 1)
Quarter: 2023Q2

REPORT INFORMATION
  Report Type: Spontaneous
  Country: KR (occurrence: KR)
  Receive Date: 20230606
  Receipt Date: 20230606
  Transmission Date: 20230721
  Serious: Yes (Death, Other)
  Sender: FDA-Public Use
  Company Number: KR-ORGANON-O2305KOR003061

PATIENT
  Sex: Male

DRUGS (8)
  1. COZAAR [Suspect]
     Active Substance: LOSARTAN POTASSIUM
     Dosage: UNK; FORMULATION: FILM-COATED TABLET
     Route: 048
     Dates: start: 20190110
  2. COZAAR [Suspect]
     Active Substance: LOSARTAN POTASSIUM
     Dosage: UNK; FORMULATION: FILM-COATED TABLET
     Route: 048
     Dates: start: 20190111
  3. CHLORHEXIDINE GLUCONATE [Concomitant]
     Active Substance: CHLORHEXIDINE GLUCONATE
     Dosage: UNK
     Route: 048
     Dates: start: 20190110
  4. CARVEDILOL [Concomitant]
     Active Substance: CARVEDILOL
     Dosage: UNK
     Dates: start: 20190110
  5. CARVEDILOL [Concomitant]
     Active Substance: CARVEDILOL
     Dosage: UNK
     Dates: start: 20190111
  6. CHLORPHENIRAMINE MALEATE [Concomitant]
     Active Substance: CHLORPHENIRAMINE MALEATE
     Dosage: UNK
     Dates: start: 20190121
  7. HYDROCHLOROTHIAZIDE [Concomitant]
     Active Substance: HYDROCHLOROTHIAZIDE
     Dosage: UNK; FORMULATION: UNCOATED TABLET
     Route: 048
     Dates: start: 20190112, end: 20190122
  8. FENTANYL [Concomitant]
     Active Substance: FENTANYL
     Dosage: UNK; ROUTE: EXTERNAL USE
     Dates: start: 20190111, end: 20190117

REACTIONS (2)
  - Haematemesis [Fatal]
  - Off label use [Unknown]

NARRATIVE: CASE EVENT DATE: 20190122
